FAERS Safety Report 8881448 (Version 3)
Quarter: 2012Q4

REPORT INFORMATION
  Report Type: Report from Study
  Country: BE (occurrence: BE)
  Receive Date: 20121101
  Receipt Date: 20121204
  Transmission Date: 20130627
  Serious: Yes (Other)
  Sender: FDA-Public Use
  Company Number: BE-ABBOTT-12P-013-1000189-00

PATIENT
  Sex: Female

DRUGS (3)
  1. HUMIRA [Suspect]
     Indication: RHEUMATOID ARTHRITIS
  2. MEDROL [Concomitant]
     Indication: RHEUMATOID ARTHRITIS
     Dosage: 2 to 4 mg per day
  3. BETA BLOCKING AGENTS [Concomitant]
     Indication: HYPERTENSION

REACTIONS (5)
  - Cervical root pain [Recovering/Resolving]
  - Psoriasis [Unknown]
  - Polyarthritis [Unknown]
  - Lymphocyte count abnormal [Unknown]
  - Viral infection [Unknown]
